FAERS Safety Report 10901645 (Version 2)
Quarter: 2015Q1

REPORT INFORMATION
  Report Type: Spontaneous
  Country: FR (occurrence: FR)
  Receive Date: 20150310
  Receipt Date: 20150313
  Transmission Date: 20150721
  Serious: Yes (Hospitalization)
  Sender: FDA-Public Use
  Company Number: FR-PFIZER INC-2015085003

PATIENT
  Age: 88 Year
  Sex: Male

DRUGS (12)
  1. BISOCE [Suspect]
     Active Substance: BISOPROLOL
     Dosage: 7.5 MG, DAILY
     Route: 048
     Dates: end: 20141022
  2. BACTRIM [Concomitant]
     Active Substance: SULFAMETHOXAZOLE\TRIMETHOPRIM
     Dosage: UNK
  3. BURINEX [Concomitant]
     Active Substance: BUMETANIDE
     Dosage: UNK
  4. FORADIL [Concomitant]
     Active Substance: FORMOTEROL FUMARATE
     Dosage: UNK
  5. SIMVASTATIN. [Concomitant]
     Active Substance: SIMVASTATIN
     Dosage: UNK
  6. DUPHALAC [Concomitant]
     Active Substance: LACTULOSE
     Dosage: UNK
  7. PREVISCAN [Concomitant]
     Active Substance: FLUINDIONE
     Dosage: UNK
  8. FLIXOTIDE [Concomitant]
     Active Substance: FLUTICASONE PROPIONATE
     Dosage: UNK
  9. CORDARONE [Suspect]
     Active Substance: AMIODARONE HYDROCHLORIDE
     Dosage: 200 MG, UNK
     Route: 048
     Dates: end: 20141022
  10. TRIATEC [Concomitant]
     Active Substance: RAMIPRIL
     Dosage: UNK
     Dates: end: 20141021
  11. LEVOTHYROX [Concomitant]
     Active Substance: LEVOTHYROXINE
     Dosage: UNK
  12. CORDARONE [Suspect]
     Active Substance: AMIODARONE HYDROCHLORIDE
     Dosage: UNK
     Route: 065
     Dates: start: 20141023

REACTIONS (7)
  - Atrioventricular block first degree [Unknown]
  - Epilepsy [Unknown]
  - Acute kidney injury [Unknown]
  - Hypoglycaemia [Unknown]
  - Fall [Unknown]
  - Bradycardia [Unknown]
  - Hyperkalaemia [Unknown]

NARRATIVE: CASE EVENT DATE: 201410
